FAERS Safety Report 7892513-5 (Version None)
Quarter: 2011Q4

REPORT INFORMATION
  Report Type: 
  Country: None (occurrence: None)
  Receive Date: 20111104
  Receipt Date: 20111025
  Transmission Date: 20120403
  Serious: Yes (Hospitalization)
  Sender: FDA-Public Use
  Company Number: US-BAYER-200928613NA

PATIENT
  Age: 21 Year
  Sex: Female
  Weight: 68 kg

DRUGS (7)
  1. YAZ [Suspect]
     Indication: CONTRACEPTION
     Dates: start: 20070901, end: 20071001
  2. TRICHLOROACETIC ACID [Concomitant]
     Indication: ANOGENITAL WARTS
  3. TYLENOL-500 [Concomitant]
     Indication: HEADACHE
     Route: 048
  4. ZANTAC [Concomitant]
     Dosage: 300 MG (DAILY DOSE), BID,
  5. MOTRIN [Concomitant]
     Indication: HEADACHE
     Route: 048
  6. MULTI-VITAMIN [Concomitant]
     Indication: SUPPLEMENTATION THERAPY
     Route: 048
  7. YAZ [Suspect]
     Indication: ACNE

REACTIONS (8)
  - DIARRHOEA [None]
  - GALLBLADDER DISORDER [None]
  - CHOLELITHIASIS [None]
  - CHOLECYSTITIS CHRONIC [None]
  - NAUSEA [None]
  - ABDOMINAL TENDERNESS [None]
  - GALLBLADDER CHOLESTEROLOSIS [None]
  - ABDOMINAL PAIN UPPER [None]
